FAERS Safety Report 9372851 (Version 2)
Quarter: 2014Q1

REPORT INFORMATION
  Report Type: Report from Study
  Country: US (occurrence: US)
  Receive Date: 20130627
  Receipt Date: 20140120
  Transmission Date: 20141002
  Serious: Yes (Hospitalization)
  Sender: FDA-Public Use
  Company Number: PHEH2013US013344

PATIENT
  Age: 59 Year
  Sex: Male

DRUGS (1)
  1. GILENYA [Suspect]
     Indication: MULTIPLE SCLEROSIS
     Dosage: 0.5 MG, QD
     Route: 048
     Dates: start: 20120507, end: 201311

REACTIONS (5)
  - Urethral perforation [Unknown]
  - Staphylococcal sepsis [Unknown]
  - Body temperature increased [Unknown]
  - Multiple sclerosis [Unknown]
  - Immunodeficiency [Unknown]
